FAERS Safety Report 18252110 (Version 1)
Quarter: 2020Q3

REPORT INFORMATION
  Report Type: Spontaneous
  Country: US (occurrence: US)
  Receive Date: 20200910
  Receipt Date: 20200910
  Transmission Date: 20201103
  Serious: No
  Sender: FDA-Public Use
  Company Number: US-FARMAPROD-202002-0171

PATIENT
  Age: 61 Year
  Sex: Female
  Weight: 71 kg

DRUGS (5)
  1. MURO 128 [Concomitant]
     Active Substance: SODIUM CHLORIDE
     Indication: CORNEAL OEDEMA
     Route: 061
  2. PREDNISOLONE. [Concomitant]
     Active Substance: PREDNISOLONE
  3. FAMVIR [Concomitant]
     Active Substance: FAMCICLOVIR
     Indication: ANTIVIRAL PROPHYLAXIS
     Route: 048
  4. COSOPT [Concomitant]
     Active Substance: DORZOLAMIDE HYDROCHLORIDE\TIMOLOL MALEATE
     Indication: GLAUCOMA
     Dosage: 20 MG/5 MG
  5. OXERVATE [Suspect]
     Active Substance: CENEGERMIN-BKBJ
     Indication: KERATITIS
     Route: 047
     Dates: start: 20200105, end: 20200229

REACTIONS (1)
  - Erythema of eyelid [Recovered/Resolved]

NARRATIVE: CASE EVENT DATE: 20200201
